FAERS Safety Report 11892345 (Version 1)
Quarter: 2016Q1

REPORT INFORMATION
  Report Type: Spontaneous
  Country: US (occurrence: US)
  Receive Date: 20160106
  Receipt Date: 20160106
  Transmission Date: 20160526
  Serious: No
  Sender: FDA-Public Use
  Company Number: US-MYLANLABS-2014M1015126

PATIENT
  Sex: Female

DRUGS (2)
  1. EPROSARTAN MESYLATE TABLETS [Suspect]
     Active Substance: EPROSARTAN
     Dosage: UNK
     Dates: start: 201411, end: 201411
  2. EPROSARTAN MESYLATE TABLETS [Suspect]
     Active Substance: EPROSARTAN
     Indication: HYPERTENSION
     Dosage: UNK UNK
     Dates: start: 2014, end: 201411

REACTIONS (5)
  - Abdominal distension [Recovered/Resolved]
  - Nausea [Recovered/Resolved]
  - Abdominal pain [Recovered/Resolved]
  - Diarrhoea [Recovered/Resolved]
  - Back pain [Recovered/Resolved]

NARRATIVE: CASE EVENT DATE: 2014
